FAERS Safety Report 8125685-8 (Version None)
Quarter: 2012Q1

REPORT INFORMATION
  Report Type: 
  Country: None (occurrence: None)
  Receive Date: 20120209
  Receipt Date: 20120207
  Transmission Date: 20120608
  Serious: Yes (Hospitalization, Other)
  Sender: FDA-Public Use
  Company Number: US-PFIZER INC-2012016361

PATIENT
  Sex: Male

DRUGS (3)
  1. CHANTIX [Suspect]
     Dosage: UNK
     Route: 048
     Dates: start: 20110901, end: 20110912
  2. CHANTIX [Suspect]
     Indication: TOBACCO USER
     Dosage: UNK
     Dates: start: 20110901, end: 20110929
  3. CHANTIX [Suspect]
     Indication: SMOKING CESSATION THERAPY
     Dosage: 0.5 MG, DAILY
     Route: 047
     Dates: start: 20110912, end: 20110901

REACTIONS (2)
  - ENZYME ABNORMALITY [None]
  - PANCREATITIS ACUTE [None]
